FAERS Safety Report 10049524 (Version 1)
Quarter: 2014Q2

REPORT INFORMATION
  Report Type: Spontaneous
  Country: US (occurrence: US)
  Receive Date: 20140401
  Receipt Date: 20140401
  Transmission Date: 20141212
  Serious: Yes (Hospitalization, Other)
  Sender: FDA-Public Use
  Company Number: US-009507513-1403USA011753

PATIENT
  Sex: Female

DRUGS (1)
  1. NEXPLANON [Suspect]
     Indication: CONTRACEPTION
     Dosage: UNK
     Route: 059
     Dates: start: 201403

REACTIONS (4)
  - Unintended pregnancy [Unknown]
  - Ectopic pregnancy [Unknown]
  - Malaise [Unknown]
  - Maternal exposure during pregnancy [Unknown]
